FAERS Safety Report 8608859-9 (Version None)
Quarter: 2012Q3

REPORT INFORMATION
  Report Type: 
  Country: None (occurrence: None)
  Receive Date: 20120821
  Receipt Date: 20120814
  Transmission Date: 20120928
  Serious: Yes (Other)
  Sender: FDA-Public Use
  Company Number: GB-PFIZER INC-2012174662

PATIENT
  Age: 69 Year
  Sex: Female

DRUGS (15)
  1. BENDROFLUMETHIAZIDE [Concomitant]
     Dosage: 2.5 MG, 1X/DAY
  2. LISINOPRIL [Concomitant]
     Dosage: 10 MG, 1X/DAY
  3. SENNA [Concomitant]
     Dosage: 7.5 MG, 1-2 TAB AT NIGHT
  4. NAPROXEN [Concomitant]
     Dosage: 500 MG, 1X/DAY
     Route: 048
  5. CHLORPHENAMINE [Concomitant]
     Dosage: 4 MG, 2-3 TAB AT NIGHT
  6. SALBUTAMOL [Concomitant]
     Dosage: 100 MG, AS NEEDED
  7. PARACETAMOL [Concomitant]
     Dosage: 1000 MG, 4X/DAY
     Route: 048
  8. DETRUSITOL XL [Suspect]
     Dosage: 4 MG, 1X/DAY
     Route: 048
  9. LANSOPRAZOLE [Concomitant]
     Dosage: 30 MG, 1X/DAY
     Route: 048
  10. PRAVASTATIN [Concomitant]
     Dosage: 40 MG, 1X/DAY
     Route: 048
  11. MOTILIUM [Concomitant]
     Dosage: 10 MG, 3X/DAY
  12. AMITRIPTYLINE [Concomitant]
     Dosage: 10 MG, 1 TAB AT NIGHT
  13. TRAMADOL [Concomitant]
     Dosage: 50 MG, 1-2 QID PRN
  14. FLUOXETINE [Concomitant]
     Dosage: 20 MG, 1X/DAY
     Route: 048
  15. BECLOMETHASONE DIPROPIONATE [Concomitant]
     Dosage: 200 MG, 2X/DAY

REACTIONS (3)
  - DRUG INEFFECTIVE [None]
  - URINARY INCONTINENCE [None]
  - CAPSULE PHYSICAL ISSUE [None]
